FAERS Safety Report 5262309-1 (Version None)
Quarter: 2007Q1

REPORT INFORMATION
  Report Type: 
  Country: None (occurrence: None)
  Receive Date: 20070312
  Receipt Date: 20070226
  Transmission Date: 20070707
  Serious: Yes (Hospitalization)
  Sender: FDA-Public Use
  Company Number: PHRM2007FR00916

PATIENT
  Age: 87 Year
  Sex: Female

DRUGS (7)
  1. TRILEPTAL [Suspect]
     Dosage: 600 MG, BID
     Route: 048
     Dates: start: 20020101, end: 20061222
  2. LIPANTHYL ^FOURNIER^ [Concomitant]
     Dosage: 1 DF, QD
     Route: 048
     Dates: start: 19990322
  3. DOMPERIDONE [Concomitant]
     Route: 048
  4. KARDEGIC [Concomitant]
     Dosage: 160 MG, QD
     Route: 048
  5. KEPPRA [Concomitant]
     Route: 048
  6. OMEPRAZOLE [Concomitant]
     Dosage: 20 MG, QD
     Route: 048
  7. FORLAX [Concomitant]
     Route: 048

REACTIONS (4)
  - BALANCE DISORDER [None]
  - COGNITIVE DISORDER [None]
  - FALL [None]
  - MINI MENTAL STATUS EXAMINATION ABNORMAL [None]
